FAERS Safety Report 6145379-8 (Version None)
Quarter: 2009Q2

REPORT INFORMATION
  Report Type: 
  Country: None (occurrence: None)
  Receive Date: 20090402
  Receipt Date: 20090326
  Transmission Date: 20091009
  Serious: Yes (Hospitalization)
  Sender: FDA-Public Use
  Company Number: CHPA2009US07705

PATIENT
  Age: 81 Year
  Sex: Female
  Weight: 61.7 kg

DRUGS (5)
  1. BENEFIBER W/ WHEAT DEXTRIN (NCH) (WHEAT DEXTRIN) POWDER [Suspect]
     Dosage: 2 TSP, QD, ORAL
     Route: 048
     Dates: start: 20090301, end: 20090301
  2. XIFAXAN (RIFAXIMIN) [Concomitant]
  3. PRILOSEC [Concomitant]
  4. VITAMINS (NO INGREDIENTS/SUBSTANCES) [Concomitant]
  5. TRAMADOL HCL [Concomitant]

REACTIONS (7)
  - ABDOMINAL PAIN [None]
  - CONDITION AGGRAVATED [None]
  - CONSTIPATION [None]
  - DIVERTICULITIS [None]
  - FLATULENCE [None]
  - NAUSEA [None]
  - VOMITING [None]
